FAERS Safety Report 6593833-7 (Version None)
Quarter: 2010Q1

REPORT INFORMATION
  Report Type: 
  Country: None (occurrence: None)
  Receive Date: 20100222
  Receipt Date: 20100212
  Transmission Date: 20100710
  Serious: Yes (Other)
  Sender: FDA-Public Use
  Company Number: PH-JNJFOC-20100206362

PATIENT
  Age: 50 Year
  Sex: Male

DRUGS (2)
  1. TOPAMAX [Suspect]
     Indication: CONVULSION
     Route: 065
  2. TOPAMAX [Suspect]
     Route: 065

REACTIONS (2)
  - NEPHROLITHIASIS [None]
  - RENAL FAILURE [None]
